FAERS Safety Report 9302693 (Version 2)
Quarter: 2014Q2

REPORT INFORMATION
  Report Type: Report from Study
  Country: MX (occurrence: MX)
  Receive Date: 20130522
  Receipt Date: 20140530
  Transmission Date: 20141212
  Serious: Yes (Death, Hospitalization, Other)
  Sender: FDA-Public Use
  Company Number: PHHY2013MX050763

PATIENT
  Age: 72 Year
  Sex: Male

DRUGS (13)
  1. THEOPHYLLINE [Concomitant]
     Dosage: 2 DF, DAILY
     Dates: start: 201303, end: 201304
  2. FLUCONAZOLE [Concomitant]
     Indication: INFECTION
     Dosage: 1 DF, DAILY
     Dates: start: 201303, end: 201304
  3. AMLODIPINE [Concomitant]
     Indication: BLOOD GLUCOSE ABNORMAL
     Dosage: 2 DF, DAILY
     Dates: start: 201303, end: 201304
  4. COMBIVENT [Concomitant]
     Indication: LUNG DISORDER
     Dosage: (SOMETIMES)
     Dates: start: 201303, end: 201304
  5. TEBONIN [Concomitant]
     Indication: MEMORY IMPAIRMENT
     Dosage: 1 UKN, DAILY
     Dates: start: 201303
  6. CO-DIOVAN [Suspect]
     Indication: HYPERTENSION
     Dosage: 1 DF, DAILY (300MG VALS, 25MG HCTZ)
     Route: 048
     Dates: start: 201303, end: 20130417
  7. DIOVAN [Suspect]
     Indication: HYPERTENSION
     Dosage: 1 UKN, DAILY
  8. TEGRETOL [Suspect]
     Indication: PAIN
     Dosage: 1 UKN, BID (1 IN THE MORNING AND 1 AT NIGHT)
     Dates: start: 201302, end: 201304
  9. TEGRETOL [Suspect]
     Indication: MONOPLEGIA
  10. HIGROTON [Suspect]
     Indication: RENAL DISORDER
     Dosage: 1 UKN, DAILY
     Dates: start: 201303, end: 201304
  11. BROXOL [Concomitant]
     Indication: LUNG DISORDER
     Dosage: 3 DF (10 ML), DAILY
     Dates: start: 201302, end: 201304
  12. CEFALEXIN [Concomitant]
     Indication: PHARYNGITIS
     Dosage: 3 DF,DAILY
     Dates: start: 201302, end: 201304
  13. FUROSEMIDE [Concomitant]
     Indication: OEDEMA PERIPHERAL
     Dosage: 2 DF, DAILY
     Dates: start: 201302, end: 201303

REACTIONS (7)
  - Respiratory arrest [Fatal]
  - Respiratory disorder [Unknown]
  - Disease complication [Not Recovered/Not Resolved]
  - Monoplegia [Not Recovered/Not Resolved]
  - Lung disorder [Not Recovered/Not Resolved]
  - Coagulopathy [Not Recovered/Not Resolved]
  - Blood glucose increased [Not Recovered/Not Resolved]
